FAERS Safety Report 23230065 (Version 2)
Quarter: 2024Q2

REPORT INFORMATION
  Report Type: Spontaneous
  Country: CH (occurrence: CH)
  Receive Date: 20231127
  Receipt Date: 20240618
  Transmission Date: 20240715
  Serious: Yes (Other)
  Sender: FDA-Public Use
  Company Number: CH-ABBVIE-5508803

PATIENT
  Sex: Male

DRUGS (4)
  1. BOTOX [Suspect]
     Active Substance: ONABOTULINUMTOXINA
     Indication: Neurofibromatosis
     Dosage: TIME INTERVAL: AS NECESSARY
     Route: 065
  2. BOTOX [Suspect]
     Active Substance: ONABOTULINUMTOXINA
     Indication: Neurofibromatosis
     Dosage: TIME INTERVAL: AS NECESSARY
     Route: 065
     Dates: start: 20230502, end: 20230502
  3. BOTOX [Suspect]
     Active Substance: ONABOTULINUMTOXINA
     Indication: Neurofibromatosis
     Dosage: TIME INTERVAL: AS NECESSARY
     Route: 065
     Dates: start: 201812, end: 201812
  4. BOTOX [Suspect]
     Active Substance: ONABOTULINUMTOXINA
     Indication: Neurofibromatosis
     Dosage: TIME INTERVAL: AS NECESSARY
     Route: 065
     Dates: start: 20230802, end: 20230802

REACTIONS (12)
  - Neuroma [Unknown]
  - Mobility decreased [Not Recovered/Not Resolved]
  - Therapeutic product effect decreased [Unknown]
  - Muscle spasticity [Unknown]
  - Spinal operation [Unknown]
  - Monoparesis [Not Recovered/Not Resolved]
  - Spinal laminectomy [Unknown]
  - Tumour excision [Unknown]
  - Gait inability [Not Recovered/Not Resolved]
  - Foot deformity [Unknown]
  - Off label use [Not Recovered/Not Resolved]
  - Musculoskeletal disorder [Not Recovered/Not Resolved]

NARRATIVE: CASE EVENT DATE: 20181201
